FAERS Safety Report 20069862 (Version 1)
Quarter: 2021Q4

REPORT INFORMATION
  Report Type: Spontaneous
  Country: US (occurrence: None)
  Receive Date: 20211114
  Receipt Date: 20211114
  Transmission Date: 20220303
  Serious: Yes (Other)
  Sender: FDA-Public Use
  Company Number: None

PATIENT
  Age: 15 Year
  Sex: Female
  Weight: 70.2 kg

DRUGS (2)
  1. BENZONATATE [Suspect]
     Active Substance: BENZONATATE
     Indication: Cough
     Dosage: OTHER QUANTITY : 30 CAPSULE(S);?FREQUENCY : 3 TIMES A DAY;?
     Route: 048
     Dates: start: 20211102, end: 20211114
  2. PREDNISONE [Suspect]
     Active Substance: PREDNISONE

REACTIONS (7)
  - Swelling face [None]
  - Swelling [None]
  - Ear swelling [None]
  - Ocular hyperaemia [None]
  - Erythema [None]
  - Erythema [None]
  - Erythema [None]

NARRATIVE: CASE EVENT DATE: 20211114
